FAERS Safety Report 8320477-9 (Version None)
Quarter: 2012Q2

REPORT INFORMATION
  Report Type: 
  Country: None (occurrence: None)
  Receive Date: 20120427
  Receipt Date: 20120427
  Transmission Date: 20120825
  Serious: Yes (Life-Threatening, Hospitalization)
  Sender: FDA-Public Use
  Company Number: None

PATIENT
  Sex: Female
  Weight: 87.996 kg

DRUGS (3)
  1. KETOROLAC TROMETHAMINE [Suspect]
     Indication: PAIN
     Dosage: 30 MG
     Route: 040
  2. ONDANSETRON [Concomitant]
     Indication: VOMITING
     Dosage: 4 MG
     Route: 040
  3. ONDANSETRON [Concomitant]
     Indication: NAUSEA
     Dosage: 4 MG
     Route: 040

REACTIONS (8)
  - INFUSION SITE URTICARIA [None]
  - HYPERVENTILATION [None]
  - CHEST PAIN [None]
  - APNOEIC ATTACK [None]
  - PULSE ABSENT [None]
  - INFUSION SITE PAIN [None]
  - HYPOAESTHESIA ORAL [None]
  - SWOLLEN TONGUE [None]
